FAERS Safety Report 15747120 (Version 3)
Quarter: 2019Q2

REPORT INFORMATION
  Report Type: Spontaneous
  Country: US (occurrence: US)
  Receive Date: 20181220
  Receipt Date: 20190418
  Transmission Date: 20190711
  Serious: Yes (Other)
  Sender: FDA-Public Use
  Company Number: US-PRINSTON PHARMACEUTICAL INC.-2018PRN01684

PATIENT
  Age: 78 Year
  Sex: Female
  Weight: 90.7 kg

DRUGS (8)
  1. FUROSEMIDE. [Concomitant]
     Active Substance: FUROSEMIDE
  2. LOSARTAN POTASSIUM. [Suspect]
     Active Substance: LOSARTAN POTASSIUM
     Indication: HYPERTENSION
     Dosage: UNK
  3. AMLODIPINE [Concomitant]
     Active Substance: AMLODIPINE BESYLATE
  4. LOSARTAN POTASSIUM. [Suspect]
     Active Substance: LOSARTAN POTASSIUM
     Dosage: 1 TABLETS, 1X/DAY
     Route: 048
     Dates: start: 2018, end: 20181126
  5. METOPROLOL ER [Concomitant]
     Active Substance: METOPROLOL SUCCINATE
  6. NP THYROID [Concomitant]
     Active Substance: LEVOTHYROXINE\LIOTHYRONINE
     Dosage: 60 MG, 2X/DAY
  7. UNSPECIFIED INSULIN [Concomitant]
     Active Substance: INSULIN NOS
  8. ^NITRO^ [Concomitant]

REACTIONS (5)
  - Skin cancer [Not Recovered/Not Resolved]
  - Actinic keratosis [Not Recovered/Not Resolved]
  - Faeces discoloured [Not Recovered/Not Resolved]
  - Blood glucose increased [Recovered/Resolved]
  - Blister [Unknown]

NARRATIVE: CASE EVENT DATE: 201809
